FAERS Safety Report 25621619 (Version 3)
Quarter: 2025Q3

REPORT INFORMATION
  Report Type: Spontaneous
  Country: US (occurrence: US)
  Receive Date: 20250730
  Receipt Date: 20250910
  Transmission Date: 20251021
  Serious: Yes (Death)
  Sender: AMGEN
  Company Number: US-AMGEN-USASP2025148614

PATIENT
  Sex: Male

DRUGS (2)
  1. IMDELLTRA [Suspect]
     Active Substance: TARLATAMAB-DLLE
     Indication: Small cell lung cancer
     Dosage: UNK UNK, Q2WK
     Route: 065
     Dates: start: 20241219, end: 20250404
  2. OLANZAPINE [Concomitant]
     Active Substance: OLANZAPINE
     Dosage: 5 MILLIGRAM, QD

REACTIONS (4)
  - Hypophagia [Fatal]
  - Dysgeusia [Fatal]
  - Fatigue [Fatal]
  - Off label use [Unknown]

NARRATIVE: CASE EVENT DATE: 20241219
